FAERS Safety Report 6400377-1 (Version None)
Quarter: 2009Q4

REPORT INFORMATION
  Report Type: 
  Country: None (occurrence: None)
  Receive Date: 20091014
  Receipt Date: 20091007
  Transmission Date: 20100525
  Serious: Yes (Hospitalization, Other)
  Sender: FDA-Public Use
  Company Number: FR-BAYER-200934653GPV

PATIENT
  Age: 46 Year
  Sex: Male

DRUGS (3)
  1. PHENYLBUTAZONE [Suspect]
     Indication: MUSCULOSKELETAL PAIN
  2. NAPROXEN [Suspect]
     Indication: MUSCULOSKELETAL PAIN
  3. MELOXICAM [Suspect]
     Indication: MUSCULOSKELETAL PAIN

REACTIONS (16)
  - BLOOD CREATININE INCREASED [None]
  - CHOLESTASIS [None]
  - COUGH [None]
  - CYTOLYTIC HEPATITIS [None]
  - DRUG INEFFECTIVE [None]
  - DRUG RASH WITH EOSINOPHILIA AND SYSTEMIC SYMPTOMS [None]
  - EOSINOPHILIA [None]
  - GENITAL HERPES [None]
  - HEPATOSPLENOMEGALY [None]
  - HERPES SIMPLEX [None]
  - HYPOAESTHESIA [None]
  - JAUNDICE [None]
  - LYMPHADENOPATHY [None]
  - PROTEINURIA [None]
  - PYREXIA [None]
  - RASH MACULO-PAPULAR [None]
